FAERS Safety Report 9474970 (Version 1)
Quarter: 2013Q3

REPORT INFORMATION
  Report Type: Report from Study
  Country: US (occurrence: US)
  Receive Date: 20130824
  Receipt Date: 20130824
  Transmission Date: 20140515
  Serious: Yes (Hospitalization, Other)
  Sender: FDA-Public Use
  Company Number: US-ROCHE-1262561

PATIENT
  Age: 44 Year
  Sex: Female
  Weight: 68 kg

DRUGS (4)
  1. BEVACIZUMAB [Suspect]
     Indication: OVARIAN EPITHELIAL CANCER
     Route: 042
     Dates: start: 20111121, end: 20130325
  2. PACLITAXEL [Suspect]
     Indication: OVARIAN EPITHELIAL CANCER
     Route: 042
     Dates: start: 20111121, end: 20120312
  3. PACLITAXEL [Suspect]
     Route: 033
  4. CISPLATIN [Suspect]
     Indication: OVARIAN EPITHELIAL CANCER
     Route: 033
     Dates: start: 20111121, end: 20120306

REACTIONS (4)
  - Small intestinal obstruction [Recovered/Resolved]
  - Hypertension [Recovered/Resolved]
  - Abdominal pain [Recovered/Resolved]
  - Oesophagitis [Recovered/Resolved]
